FAERS Safety Report 23076924 (Version 1)
Quarter: 2023Q4

REPORT INFORMATION
  Report Type: Spontaneous
  Country: CN (occurrence: CN)
  Receive Date: 20231018
  Receipt Date: 20231018
  Transmission Date: 20240109
  Serious: Yes (Other)
  Sender: FDA-Public Use
  Company Number: CN-STRIDES ARCOLAB LIMITED-2023SP015584

PATIENT
  Age: 36 Year
  Sex: Male

DRUGS (9)
  1. ETOPOSIDE [Suspect]
     Active Substance: ETOPOSIDE
     Indication: Adrenocortical carcinoma
     Dosage: 200 MILLIGRAM, CYCLICAL (ON DAYS 1-3)
     Route: 065
     Dates: start: 20210508
  2. MITOTANE [Suspect]
     Active Substance: MITOTANE
     Indication: Adrenocortical carcinoma
     Dosage: 1.5 GRAM PER DAY
     Route: 065
     Dates: start: 20210501
  3. MITOTANE [Suspect]
     Active Substance: MITOTANE
     Dosage: 1.5 GRAM PER DAY
     Route: 065
     Dates: start: 20210508
  4. MITOTANE [Suspect]
     Active Substance: MITOTANE
     Dosage: 4 GRAM PER DAY
     Route: 065
     Dates: start: 20210601
  5. MITOTANE [Suspect]
     Active Substance: MITOTANE
     Dosage: 3.5 GRAM PER DAY
     Route: 065
     Dates: start: 20210624
  6. MITOTANE [Suspect]
     Active Substance: MITOTANE
     Dosage: 3 GRAM PER DAY
     Route: 065
     Dates: start: 20210725
  7. PARAPLATIN [Suspect]
     Active Substance: CARBOPLATIN
     Indication: Adrenocortical carcinoma
     Dosage: 500 MILLIGRAM, CYCLICAL (ON DAY 1)
     Route: 065
     Dates: start: 20210508
  8. SINTILIMAB [Suspect]
     Active Substance: SINTILIMAB
     Indication: Adrenocortical carcinoma
     Dosage: 200 MILLIGRAM, ONCE A MONTH
     Route: 065
     Dates: start: 20210601
  9. POTASSIUM CHLORIDE [Concomitant]
     Active Substance: POTASSIUM CHLORIDE
     Indication: Hypokalaemia
     Dosage: UNK
     Route: 065

REACTIONS (3)
  - Hypothyroidism [Recovered/Resolved]
  - Adrenal insufficiency [Recovered/Resolved]
  - Off label use [Unknown]

NARRATIVE: CASE EVENT DATE: 20210101
